FAERS Safety Report 16373274 (Version 1)
Quarter: 2019Q2

REPORT INFORMATION
  Report Type: Spontaneous
  Country: US (occurrence: US)
  Receive Date: 20190530
  Receipt Date: 20190530
  Transmission Date: 20190711
  Serious: No
  Sender: FDA-Public Use
  Company Number: US-ASTRAZENECA-2019SE69768

PATIENT
  Age: 76 Year
  Sex: Female

DRUGS (1)
  1. IMFINZI [Suspect]
     Active Substance: DURVALUMAB
     Indication: NON-SMALL CELL LUNG CANCER STAGE III
     Dosage: UNKNOWN
     Route: 042

REACTIONS (3)
  - Proteinuria [Recovering/Resolving]
  - Autoimmune nephritis [Recovering/Resolving]
  - Blood creatinine increased [Recovering/Resolving]
